FAERS Safety Report 16482197 (Version 1)
Quarter: 2019Q2

REPORT INFORMATION
  Report Type: Spontaneous
  Country: SK (occurrence: SK)
  Receive Date: 20190627
  Receipt Date: 20190627
  Transmission Date: 20190711
  Serious: Yes (Hospitalization, Other)
  Sender: FDA-Public Use
  Company Number: SK-SA-2019SA159016

PATIENT
  Age: 70 Year
  Sex: Female

DRUGS (9)
  1. EBRANTIL [URAPIDIL] [Concomitant]
     Active Substance: URAPIDIL
     Dosage: 30 MG; 1-1-1
  2. OSSICA [Concomitant]
     Active Substance: IBANDRONATE SODIUM
     Dosage: 150 MG, UNK
  3. LEXAURIN [Concomitant]
     Active Substance: BROMAZEPAM
     Dosage: 1.5 MG
  4. CALCICHEW D3 [Concomitant]
     Active Substance: CALCIUM\CHOLECALCIFEROL
     Dosage: 500/400, 0-0-1
  5. TRIPLIXAM [Concomitant]
     Active Substance: AMLODIPINE BESYLATE\INDAPAMIDE\PERINDOPRIL ARGININE
     Dosage: 10/2,5/5 MG 1-0-0
  6. NEBILET [Concomitant]
     Active Substance: NEBIVOLOL
     Dosage: 5 MG, 1-0-0
  7. ATORIS [Concomitant]
     Active Substance: ATORVASTATIN CALCIUM
     Dosage: 20 MG, 0-0-1
  8. THYROGEN [Suspect]
     Active Substance: THYROTROPIN ALFA
     Dosage: 0.9 MG, UNK
     Route: 030
     Dates: start: 20190603
  9. EUTHYROX [Concomitant]
     Active Substance: LEVOTHYROXINE SODIUM
     Dosage: 1000 UG, 1 TABLET IN THE MORNING

REACTIONS (17)
  - Blood pressure abnormal [Unknown]
  - Altered state of consciousness [Unknown]
  - Speech disorder [Unknown]
  - Gait disturbance [Unknown]
  - Facial asymmetry [Unknown]
  - Neurological symptom [Unknown]
  - Euphoric mood [Unknown]
  - Confusional state [Unknown]
  - Hyperhidrosis [Unknown]
  - Miosis [Unknown]
  - Restlessness [Unknown]
  - Hypoglycaemia [Recovered/Resolved]
  - Dysarthria [Unknown]
  - Eye disorder [Unknown]
  - Hyponatraemia [Unknown]
  - Disorientation [Unknown]
  - Unevaluable event [Unknown]

NARRATIVE: CASE EVENT DATE: 201906
